FAERS Safety Report 11589409 (Version 2)
Quarter: 2015Q4

REPORT INFORMATION
  Report Type: Spontaneous
  Country: CZ (occurrence: CZ)
  Receive Date: 20151002
  Receipt Date: 20151030
  Transmission Date: 20160304
  Serious: Yes (Other)
  Sender: FDA-Public Use
  Company Number: CZ-TEVA-596106ISR

PATIENT
  Age: 67 Year
  Sex: Male

DRUGS (3)
  1. VINORELBINE [Concomitant]
     Active Substance: VINORELBINE\VINORELBINE TARTRATE
     Dosage: COBMINATION OF VINORELBINE AND CISPLATIN, LATER ON COMBINATION OF VINORELBINE AND CARBOPLATIN
     Dates: start: 2011, end: 2011
  2. CISPLATIN. [Suspect]
     Active Substance: CISPLATIN
     Dosage: COMBINATION OF VINORELBIN AND CISPLATIN
     Dates: start: 2011, end: 2011
  3. CARBOPLATIN. [Suspect]
     Active Substance: CARBOPLATIN
     Dosage: COMBINATION OF VINORELBIN AND CARBOPLATIN
     Dates: start: 2011, end: 2011

REACTIONS (2)
  - Renal impairment [Recovered/Resolved]
  - Metastasis [Not Recovered/Not Resolved]
